FAERS Safety Report 6192097-6 (Version None)
Quarter: 2009Q2

REPORT INFORMATION
  Report Type: 
  Country: None (occurrence: None)
  Receive Date: 20090515
  Receipt Date: 20090506
  Transmission Date: 20091009
  Serious: Yes (Hospitalization)
  Sender: FDA-Public Use
  Company Number: SE-PFIZER INC-2009208535

PATIENT
  Age: 66 Year

DRUGS (3)
  1. FESOTERODINE [Suspect]
     Indication: HYPERTONIC BLADDER
     Dosage: 8 MG, 1X/DAY
     Dates: start: 20090131, end: 20090505
  2. PULMICORT-100 [Concomitant]
     Dosage: 200 UG, 2X/DAY
     Route: 055
     Dates: start: 20030101
  3. BRICANYL [Concomitant]
     Dosage: 0.5 MG, AS NEEDED
     Route: 055
     Dates: start: 20030101

REACTIONS (2)
  - HYPERTENSION [None]
  - PALPITATIONS [None]
